FAERS Safety Report 5297315-4 (Version None)
Quarter: 2007Q2

REPORT INFORMATION
  Report Type: 
  Country: None (occurrence: None)
  Receive Date: 20070409
  Receipt Date: 20070328
  Transmission Date: 20071010
  Serious: Yes (Hospitalization)
  Sender: FDA-Public Use
  Company Number: GXKR2007JP02953

PATIENT
  Age: 46 Year
  Sex: Male

DRUGS (8)
  1. CARBAMAZEPINE [Suspect]
     Indication: SCHIZOPHRENIA
     Dosage: 600 MG DAILY
  2. PROMETHAZINE HCL [Suspect]
     Dosage: 50 MG DAILY
  3. FLUNITRAZEPAM (NGX)(FLUNITRAZPEM) UNKNOWN [Suspect]
     Dosage: 2 MG DAILY
  4. LITHIUM CARBONATE [Suspect]
     Dosage: 800 MG
  5. NIMETAZEPAM(NIMETAZEPAM) [Suspect]
     Dosage: 5 MG DAILY
  6. OXATOMIDE [Suspect]
     Dosage: 60 MG DAILY
  7. LISPERIDONE() [Suspect]
  8. BULOTIZOLAM()( [Suspect]
     Dosage: 10 MG DAILY

REACTIONS (6)
  - BLOOD SODIUM INCREASED [None]
  - CENTRAL NERVOUS SYSTEM LESION [None]
  - CSF TEST ABNORMAL [None]
  - DIABETES INSIPIDUS [None]
  - DRUG INEFFECTIVE [None]
  - DRUG WITHDRAWAL SYNDROME [None]
